FAERS Safety Report 9032582 (Version 1)
Quarter: 2013Q1

REPORT INFORMATION
  Report Type: Spontaneous
  Country: ES (occurrence: None)
  Receive Date: 20130109
  Receipt Date: 20130109
  Transmission Date: 20140127
  Serious: Yes (Other)
  Sender: FDA-Public Use
  Company Number: FK201300004

PATIENT
  Age: 60 Year
  Sex: Male

DRUGS (1)
  1. GEMCITABINE (MANUFACTURER UNKNOWN) (GEMCITABINE) (GEMCITABINE) [Suspect]
     Indication: ADENOCARCINOMA PANCREAS
     Dosage: 1450 MG/M2, ON DAYS 1, 8 AND 15

REACTIONS (4)
  - Thrombotic microangiopathy [None]
  - Pain in extremity [None]
  - Fat necrosis [None]
  - Livedo reticularis [None]
